FAERS Safety Report 6292392 (Version 8)
Quarter: 2013Q3

REPORT INFORMATION
  Report Type: Spontaneous
  Country: US (occurrence: US)
  Receive Date: 20070419
  Receipt Date: 20130822
  Transmission Date: 20140515
  Serious: Yes (Hospitalization, Other)
  Sender: FDA-Public Use
  Company Number: US-MERCK-0702USA01500

PATIENT
  Sex: Male

DRUGS (2)
  1. FOSAMAX [Suspect]
     Indication: OSTEOPOROSIS
     Dosage: 10 MG, QD
     Route: 048
     Dates: start: 20011021, end: 20030813
  2. FOSAMAX [Suspect]
     Dosage: 70 MG, QW
     Route: 048
     Dates: start: 20030813, end: 20050124

REACTIONS (16)
  - Coronary artery disease [Unknown]
  - Aneurysm repair [Unknown]
  - Abscess [Unknown]
  - Atrial fibrillation [Recovered/Resolved]
  - Appendicitis [Recovered/Resolved]
  - Anaemia [Unknown]
  - Atrial fibrillation [Recovering/Resolving]
  - Osteonecrosis of jaw [Unknown]
  - Osteomyelitis [Unknown]
  - Conjunctival haemorrhage [Unknown]
  - Aortic aneurysm [Unknown]
  - Bone loss [Unknown]
  - Chronic obstructive pulmonary disease [Unknown]
  - Myocardial ischaemia [Unknown]
  - Tooth loss [Unknown]
  - Drug hypersensitivity [Unknown]
